FAERS Safety Report 5183290-X (Version None)
Quarter: 2006Q4

REPORT INFORMATION
  Report Type: 
  Country: None (occurrence: None)
  Receive Date: 20061220
  Receipt Date: 20060105
  Transmission Date: 20070319
  Serious: No
  Sender: FDA-Public Use
  Company Number: US-GLAXOSMITHKLINE-A0587912A

PATIENT
  Age: 35 Year
  Sex: Male

DRUGS (2)
  1. NICODERM CQ [Suspect]
     Dosage: 21MG UNKNOWN
     Dates: start: 20060101
  2. NICORETTE [Suspect]
     Dosage: 4MG SINGLE DOSE
     Dates: start: 20060102, end: 20060102

REACTIONS (9)
  - ABNORMAL DREAMS [None]
  - ASTHENIA [None]
  - DIZZINESS [None]
  - HYPERHIDROSIS [None]
  - NAUSEA [None]
  - NICOTINE DEPENDENCE [None]
  - PHARMACEUTICAL PRODUCT COMPLAINT [None]
  - VOMITING [None]
  - WEIGHT DECREASED [None]
